FAERS Safety Report 9718152 (Version 1)
Quarter: 2013Q4

REPORT INFORMATION
  Report Type: Spontaneous
  Country: US (occurrence: US)
  Receive Date: 20131125
  Receipt Date: 20131125
  Transmission Date: 20140711
  Serious: No
  Sender: FDA-Public Use
  Company Number: US-VIVUS-2013V1000061

PATIENT
  Age: 56 Year
  Sex: Female
  Weight: 125.08 kg

DRUGS (8)
  1. QSYMIA 3.75MG/23MG [Suspect]
     Indication: WEIGHT DECREASED
     Route: 048
     Dates: start: 20130109, end: 20130122
  2. QSYMIA 7.5MG/46MG [Suspect]
     Indication: WEIGHT DECREASED
     Route: 048
     Dates: start: 20130123
  3. ATENOLOL [Concomitant]
     Indication: PALPITATIONS
  4. AMLODIPINE [Concomitant]
     Indication: HYPERTENSION
  5. ASPIRIN [Concomitant]
     Indication: PRODUCT USED FOR UNKNOWN INDICATION
  6. LISINOPRIL [Concomitant]
     Indication: RENAL DISORDER
  7. LEVOTHYROXINE [Concomitant]
     Indication: THYROID OPERATION
  8. TRIAMTERENE/HCTZ [Concomitant]
     Indication: HYPERTENSION

REACTIONS (2)
  - Palpitations [Not Recovered/Not Resolved]
  - Anxiety [Recovered/Resolved]
